FAERS Safety Report 19256777 (Version 3)
Quarter: 2021Q2

REPORT INFORMATION
  Report Type: Report from Study
  Country: CA (occurrence: CA)
  Receive Date: 20210513
  Receipt Date: 20210623
  Transmission Date: 20210717
  Serious: Yes (Hospitalization, Other)
  Sender: FDA-Public Use
  Company Number: CA-CELGENEUS-CAN-20210501192

PATIENT
  Age: 59 Year
  Sex: Male
  Weight: 68 kg

DRUGS (19)
  1. BENADRYL [Concomitant]
     Active Substance: DIPHENHYDRAMINE HYDROCHLORIDE
     Indication: PROPHYLAXIS
     Dosage: 50 MG X 1 X 1 DAYS
     Route: 042
     Dates: start: 20210427, end: 20210427
  2. JCAR017 [Suspect]
     Active Substance: LISOCABTAGENE MARALEUCEL
     Indication: FOLLICULAR LYMPHOMA
     Dosage: 100 X 10^6 CAR+ T CELLS X ONCE
     Route: 042
     Dates: start: 20210427, end: 20210427
  3. CYCLOPHOSPHAMIDE. [Suspect]
     Active Substance: CYCLOPHOSPHAMIDE
     Dosage: 540 MG X 1 X 1 DAYS
     Route: 042
     Dates: start: 20210422, end: 20210422
  4. LOPERAMIDE [Concomitant]
     Active Substance: LOPERAMIDE
     Indication: DIARRHOEA
     Dosage: 2 MG X PRN
     Route: 048
     Dates: start: 202004
  5. OXAZEPAM. [Concomitant]
     Active Substance: OXAZEPAM
     Indication: INSOMNIA
     Dosage: 15 MG X PRN
     Route: 048
     Dates: start: 20200325
  6. VALTREX [Concomitant]
     Active Substance: VALACYCLOVIR HYDROCHLORIDE
     Indication: PROPHYLAXIS
     Dosage: 500 MG X 2 X 1 DAYS
     Route: 048
     Dates: start: 20210421
  7. FLUCONAZOLE. [Concomitant]
     Active Substance: FLUCONAZOLE
     Indication: PROPHYLAXIS
     Dosage: 400 MG X 1 X 1 DAYS
     Route: 048
     Dates: start: 20210502, end: 20210509
  8. KYTRIL [Concomitant]
     Active Substance: GRANISETRON HYDROCHLORIDE
     Indication: PROPHYLAXIS
     Dosage: 1 MG X 1 X 1 DAYS
     Route: 042
     Dates: start: 20210427, end: 20210427
  9. FLUDARABINE [Suspect]
     Active Substance: FLUDARABINE PHOSPHATE
     Indication: FOLLICULAR LYMPHOMA
     Dosage: 54 MG X 1 X 1 DAYS
     Route: 042
     Dates: start: 20210421, end: 20210421
  10. FLUDARABINE [Suspect]
     Active Substance: FLUDARABINE PHOSPHATE
     Dosage: 54 MG X 1 X 1 DAYS
     Route: 042
     Dates: start: 20210422, end: 20210422
  11. ALLOPURINOL. [Concomitant]
     Active Substance: ALLOPURINOL
     Indication: PROPHYLAXIS
     Dosage: 300 MG X 1 X 1 DAYS
     Route: 048
     Dates: start: 20210420, end: 20210503
  12. CYCLOPHOSPHAMIDE. [Suspect]
     Active Substance: CYCLOPHOSPHAMIDE
     Indication: FOLLICULAR LYMPHOMA
     Dosage: 540 MG X 1 X 1 DAYS
     Route: 042
     Dates: start: 20210421, end: 20210421
  13. LEVETIRACETAM. [Concomitant]
     Active Substance: LEVETIRACETAM
     Indication: PROPHYLAXIS
     Dosage: 750 MG X 2 X 1 DAYS
     Route: 048
     Dates: start: 20210426
  14. PANTOPRAZOLE [Concomitant]
     Active Substance: PANTOPRAZOLE
     Indication: PROPHYLAXIS
     Dosage: 40 MG X 1 X 1 DAYS
     Route: 048
     Dates: start: 20210421, end: 20210513
  15. CYCLOPHOSPHAMIDE. [Suspect]
     Active Substance: CYCLOPHOSPHAMIDE
     Dosage: 540 MG X 1 X 1 DAYS
     Route: 042
     Dates: start: 20210423, end: 20210423
  16. SEPTRA DS [Concomitant]
     Active Substance: SULFAMETHOXAZOLE\TRIMETHOPRIM
     Indication: PROPHYLAXIS
     Dosage: 860/180 MG X 3 X 1 WEEKS
     Route: 048
     Dates: start: 20210510
  17. FLUDARABINE [Suspect]
     Active Substance: FLUDARABINE PHOSPHATE
     Dosage: 54 MG X 1 X 1 DAYS
     Route: 042
     Dates: start: 20210423, end: 20210423
  18. KYTRIL [Concomitant]
     Active Substance: GRANISETRON HYDROCHLORIDE
     Indication: ADVERSE EVENT
     Dosage: 1 MG X PRN
     Route: 042
     Dates: start: 20210504, end: 20210510
  19. KITRIL [Concomitant]
     Indication: PROPHYLAXIS
     Dosage: 1 MG X 1 X 1 DAYS
     Route: 042
     Dates: start: 20210421, end: 20210423

REACTIONS (1)
  - Neurotoxicity [Recovered/Resolved]

NARRATIVE: CASE EVENT DATE: 20210504
